FAERS Safety Report 7218607-5 (Version None)
Quarter: 2011Q1

REPORT INFORMATION
  Report Type: 
  Country: None (occurrence: None)
  Receive Date: 20110110
  Receipt Date: 20101231
  Transmission Date: 20110831
  Serious: Yes (Death)
  Sender: FDA-Public Use
  Company Number: US-PFIZER INC-2011003659

PATIENT
  Age: 56 Year
  Sex: Female

DRUGS (11)
  1. METFORMIN HCL [Suspect]
     Route: 048
  2. OXYCONTIN [Suspect]
     Route: 048
  3. OXYCODONE [Suspect]
     Route: 048
  4. VENLAFAXINE HCL [Suspect]
     Route: 048
  5. LISINOPRIL [Suspect]
     Route: 048
  6. SIMVASTATIN [Suspect]
     Route: 048
  7. MELOXICAM [Suspect]
     Route: 048
  8. ETHANOL [Suspect]
     Route: 048
  9. TRAMADOL HYDROCHLORIDE [Suspect]
     Route: 048
  10. CLONAZEPAM [Suspect]
     Route: 048
  11. PROMETHAZINE HYDROCHLORIDE [Suspect]
     Route: 048

REACTIONS (1)
  - DEATH [None]
